FAERS Safety Report 6185673-8 (Version None)
Quarter: 2009Q2

REPORT INFORMATION
  Report Type: 
  Country: None (occurrence: None)
  Receive Date: 20090511
  Receipt Date: 20090507
  Transmission Date: 20091009
  Serious: Yes (Death)
  Sender: FDA-Public Use
  Company Number: PHHY2009MX17547

PATIENT
  Age: 82 Year
  Sex: Female

DRUGS (1)
  1. DIOVAN [Suspect]
     Indication: HYPERTENSION
     Dosage: 80 MG PER DAY
     Route: 048
     Dates: start: 20061101

REACTIONS (2)
  - DEATH [None]
  - SUFFOCATION FEELING [None]
